FAERS Safety Report 25337914 (Version 2)
Quarter: 2025Q2

REPORT INFORMATION
  Report Type: Spontaneous
  Country: US (occurrence: US)
  Receive Date: 20250520
  Receipt Date: 20250523
  Transmission Date: 20250717
  Serious: No
  Sender: Kenvue
  Company Number: US-KENVUE-20250505458

PATIENT
  Sex: Male

DRUGS (1)
  1. MENS ROGAINE EXTRA STRENGTH [Suspect]
     Active Substance: MINOXIDIL
     Indication: Alopecia
     Dosage: WHAT PRESCRIBED IN THE BOX. TWICE A DAY., ALREADY USED ANOTHER 6 MONTHS SUPPLY
     Route: 065
     Dates: start: 202406

REACTIONS (1)
  - Drug ineffective [Unknown]
